FAERS Safety Report 8778073 (Version 3)
Quarter: 2012Q4

REPORT INFORMATION
  Report Type: 
  Country: US (occurrence: US)
  Receive Date: 20120912
  Receipt Date: 20121024
  Transmission Date: 20130627
  Serious: Yes (Hospitalization)
  Sender: FDA-Public Use
  Company Number: US-ASTRAZENECA-2012SE60919

PATIENT
  Age: 52 Year
  Sex: Male

DRUGS (5)
  1. NEXIUM [Suspect]
     Indication: GASTROOESOPHAGEAL REFLUX DISEASE
     Route: 048
  2. EFFEXOR [Suspect]
     Route: 065
  3. PERCOCET [Suspect]
     Dosage: 5/325 FOUR TIMES A DAY
     Route: 065
  4. CELEXA [Concomitant]
  5. REGLAN [Concomitant]

REACTIONS (29)
  - Back pain [Unknown]
  - Gastrooesophageal reflux disease [Unknown]
  - Oesophagitis [Unknown]
  - Feeling abnormal [Unknown]
  - Adverse event [Unknown]
  - Intervertebral disc disorder [Unknown]
  - Cough [Unknown]
  - Dyspnoea [Not Recovered/Not Resolved]
  - Asthma [Unknown]
  - Wheezing [Unknown]
  - Choking sensation [Unknown]
  - Sleep disorder due to general medical condition, insomnia type [Unknown]
  - Dysphagia [Unknown]
  - Weight increased [Unknown]
  - Oesophageal hypomotility [Unknown]
  - Bronchial hyperreactivity [Unknown]
  - Chest pain [Unknown]
  - Hypertension [Unknown]
  - Musculoskeletal pain [Unknown]
  - Presyncope [Unknown]
  - Odynophagia [Unknown]
  - Osteoarthritis [Unknown]
  - Fatigue [Unknown]
  - Laryngospasm [Unknown]
  - Increased upper airway secretion [Unknown]
  - Arthralgia [Unknown]
  - Depression [Not Recovered/Not Resolved]
  - Paraesthesia [Unknown]
  - Drug dose omission [Unknown]
